FAERS Safety Report 6128930-3 (Version None)
Quarter: 2009Q1

REPORT INFORMATION
  Report Type: 
  Country: None (occurrence: None)
  Receive Date: 20090324
  Receipt Date: 20090311
  Transmission Date: 20090719
  Serious: Yes (Other)
  Sender: FDA-Public Use
  Company Number: PHHY2009CH08963

PATIENT
  Age: 37 Year
  Sex: Male

DRUGS (3)
  1. IMATINIB MESYLATE [Suspect]
     Indication: CHRONIC MYELOID LEUKAEMIA
     Dosage: 400 MG DAILY
  2. IMATINIB MESYLATE [Suspect]
     Dosage: REDUCED
  3. IMATINIB MESYLATE [Suspect]
     Dosage: 400 MG, QD

REACTIONS (15)
  - ABDOMINAL PAIN [None]
  - ANOREXIA [None]
  - ASCITES [None]
  - BLOOD ALKALINE PHOSPHATASE INCREASED [None]
  - HEPATOSPLENOMEGALY [None]
  - INFLAMMATION [None]
  - LIVER FUNCTION TEST ABNORMAL [None]
  - LYMPHOPENIA [None]
  - MYCOBACTERIAL INFECTION [None]
  - NAUSEA [None]
  - PERITONEAL INFECTION [None]
  - PERITONEAL TUBERCULOSIS [None]
  - PERITONITIS [None]
  - STEM CELL TRANSPLANT [None]
  - TRANSAMINASES INCREASED [None]
